FAERS Safety Report 17817530 (Version 3)
Quarter: 2021Q1

REPORT INFORMATION
  Report Type: Other
  Country: KR (occurrence: KR)
  Receive Date: 20200522
  Receipt Date: 20210311
  Transmission Date: 20210419
  Serious: Yes (Hospitalization, Other)
  Sender: FDA-Public Use
  Company Number: KR-ROCHE-2601576

PATIENT
  Age: 56 Year
  Sex: Female

DRUGS (65)
  1. PERTUZUMAB. [Suspect]
     Active Substance: PERTUZUMAB
     Route: 042
     Dates: start: 20200115
  2. PERTUZUMAB. [Suspect]
     Active Substance: PERTUZUMAB
     Route: 042
     Dates: start: 20200205
  3. PERTUZUMAB. [Suspect]
     Active Substance: PERTUZUMAB
     Route: 042
     Dates: start: 20200415
  4. PERTUZUMAB. [Suspect]
     Active Substance: PERTUZUMAB
     Route: 042
     Dates: start: 20200627
  5. TRASTUZUMAB. [Suspect]
     Active Substance: TRASTUZUMAB
     Indication: BRAIN NEOPLASM MALIGNANT
     Route: 042
     Dates: start: 20191024, end: 20191024
  6. DOCETAXEL. [Suspect]
     Active Substance: DOCETAXEL
     Route: 042
     Dates: start: 20191225
  7. OMP [Concomitant]
     Active Substance: OMEPRAZOLE
     Route: 048
     Dates: start: 20200116
  8. ALOXI [Concomitant]
     Active Substance: PALONOSETRON HYDROCHLORIDE
     Route: 042
     Dates: start: 20200325
  9. MEDILAC DS [Concomitant]
     Route: 048
     Dates: start: 20200717
  10. DUROGESIC [Concomitant]
     Active Substance: FENTANYL
     Indication: BACK PAIN
     Dates: start: 20200414
  11. ZYPREXA ZYDIS [Concomitant]
     Active Substance: OLANZAPINE
     Indication: INSOMNIA
     Route: 048
     Dates: start: 20191209, end: 20191209
  12. BANAN [Concomitant]
     Active Substance: CEFPODOXIME PROXETIL
     Route: 048
     Dates: start: 20200218, end: 20200222
  13. PERTUZUMAB. [Suspect]
     Active Substance: PERTUZUMAB
     Route: 042
     Dates: start: 20200304
  14. TARGIN [Concomitant]
     Active Substance: NALOXONE HYDROCHLORIDE\OXYCODONE HYDROCHLORIDE
     Indication: BACK PAIN
     Route: 048
     Dates: start: 20191104, end: 20200413
  15. LASIX [Concomitant]
     Active Substance: FUROSEMIDE
     Route: 048
     Dates: start: 20191205
  16. PLAKON [Concomitant]
     Route: 042
     Dates: start: 20200209, end: 20200209
  17. GASTER (SOUTH KOREA) [Concomitant]
     Route: 042
     Dates: start: 20200226, end: 20200226
  18. MOPRIDE (SOUTH KOREA) [Concomitant]
     Route: 048
     Dates: start: 20200324
  19. STILNOX [Concomitant]
     Active Substance: ZOLPIDEM TARTRATE
  20. PERTUZUMAB. [Suspect]
     Active Substance: PERTUZUMAB
     Route: 042
     Dates: start: 20191114
  21. PERTUZUMAB. [Suspect]
     Active Substance: PERTUZUMAB
     Route: 042
     Dates: start: 20191205
  22. PERTUZUMAB. [Suspect]
     Active Substance: PERTUZUMAB
     Route: 042
     Dates: start: 20200806
  23. PERTUZUMAB. [Suspect]
     Active Substance: PERTUZUMAB
     Route: 042
     Dates: start: 20200901
  24. TRASTUZUMAB. [Suspect]
     Active Substance: TRASTUZUMAB
     Route: 042
     Dates: start: 20200606, end: 20200901
  25. TARGIN [Concomitant]
     Active Substance: NALOXONE HYDROCHLORIDE\OXYCODONE HYDROCHLORIDE
     Route: 048
     Dates: start: 20191024, end: 20200325
  26. IRCODON [Concomitant]
     Active Substance: OXYCODONE HYDROCHLORIDE
     Route: 048
     Dates: start: 20200116, end: 202002
  27. GASTER (SOUTH KOREA) [Concomitant]
     Route: 042
     Dates: start: 20200209, end: 20200214
  28. GASTER (SOUTH KOREA) [Concomitant]
     Route: 042
     Dates: start: 20200506, end: 20200506
  29. MORPHINE SULFATE. [Concomitant]
     Active Substance: MORPHINE SULFATE
     Indication: BACK PAIN
     Route: 042
     Dates: start: 20200509, end: 20200509
  30. PERTUZUMAB. [Suspect]
     Active Substance: PERTUZUMAB
     Route: 042
     Dates: start: 20200325
  31. DOCETAXEL. [Suspect]
     Active Substance: DOCETAXEL
     Indication: BRAIN NEOPLASM MALIGNANT
     Route: 042
     Dates: start: 20191024, end: 20191024
  32. CELEBREX [Concomitant]
     Active Substance: CELECOXIB
     Indication: BACK PAIN
     Route: 048
     Dates: start: 20191104, end: 20200416
  33. SANCUSO [Concomitant]
     Active Substance: GRANISETRON
     Dosage: PATCH
     Route: 061
     Dates: start: 20191114
  34. ALENMAX PLUS D [Concomitant]
     Indication: OSTEOPOROSIS
     Route: 048
     Dates: start: 20191115
  35. TYLENOL ER [Concomitant]
     Active Substance: ACETAMINOPHEN
     Route: 048
     Dates: start: 20191024
  36. SMOFKABIVEN PERIPHERAL [Concomitant]
     Route: 042
     Dates: start: 20200209, end: 20200213
  37. SMECTA [Concomitant]
     Active Substance: MONTMORILLONITE
     Route: 048
     Dates: start: 20200305, end: 202004
  38. ROCEPHIN [Concomitant]
     Active Substance: CEFTRIAXONE SODIUM
     Route: 042
     Dates: start: 20200508, end: 20200514
  39. DEXAMETHASONE. [Concomitant]
     Active Substance: DEXAMETHASONE
     Route: 048
     Dates: start: 20191113
  40. FEROBA YOU [Concomitant]
     Route: 048
     Dates: start: 20200304
  41. MEDILAC DS [Concomitant]
     Indication: DIARRHOEA
     Route: 048
     Dates: start: 20200219, end: 20200226
  42. MEGACE ORAL SUSPENSION [Concomitant]
     Route: 048
     Dates: start: 20200415, end: 20200416
  43. DENOGAN [Concomitant]
     Active Substance: PROPACETAMOL HYDROCHLORIDE
     Indication: COLITIS
     Route: 042
     Dates: start: 20200208, end: 20200208
  44. TIROPA [Concomitant]
     Active Substance: TIROPRAMIDE
     Indication: COLITIS
     Route: 048
     Dates: start: 20200208, end: 20200208
  45. TRASTUZUMAB. [Suspect]
     Active Substance: TRASTUZUMAB
     Route: 042
     Dates: start: 20191114
  46. DOCETAXEL. [Suspect]
     Active Substance: DOCETAXEL
     Route: 042
     Dates: start: 20191114, end: 20191205
  47. PLAKON [Concomitant]
     Route: 042
     Dates: start: 20191024
  48. DICAMAX [Concomitant]
     Indication: OSTEOPOROSIS
     Dosage: 1 TAB
     Route: 048
     Dates: start: 20191024, end: 20200513
  49. LOPAINE [Concomitant]
     Route: 048
     Dates: start: 20200305, end: 202003
  50. PANTOLIN [Concomitant]
  51. SMOFKABIVEN PERIPHERAL [Concomitant]
     Route: 042
     Dates: start: 20200508, end: 20200512
  52. PERTUZUMAB. [Suspect]
     Active Substance: PERTUZUMAB
     Indication: BRAIN NEOPLASM MALIGNANT
     Route: 042
     Dates: start: 20191024, end: 20191024
  53. DEXAMETHASONE. [Concomitant]
     Active Substance: DEXAMETHASONE
     Route: 042
     Dates: start: 20191024
  54. IRCODON [Concomitant]
     Active Substance: OXYCODONE HYDROCHLORIDE
     Route: 048
     Dates: start: 20191025, end: 20200115
  55. XGEVA [Concomitant]
     Active Substance: DENOSUMAB
     Indication: OSTEOPOROSIS
     Route: 058
     Dates: start: 20200414, end: 20200414
  56. MEGACE ORAL SUSPENSION [Concomitant]
     Route: 048
     Dates: start: 20200206, end: 20200220
  57. FLAGYL [Concomitant]
     Active Substance: METRONIDAZOLE\METRONIDAZOLE HYDROCHLORIDE
     Indication: COLITIS
     Route: 042
     Dates: start: 20200209, end: 20200218
  58. PERTUZUMAB. [Suspect]
     Active Substance: PERTUZUMAB
     Route: 042
     Dates: start: 20191225
  59. PERTUZUMAB. [Suspect]
     Active Substance: PERTUZUMAB
     Route: 042
     Dates: start: 20200606
  60. PERTUZUMAB. [Suspect]
     Active Substance: PERTUZUMAB
     Route: 042
     Dates: start: 20200718
  61. DEXAMETHASONE. [Concomitant]
     Active Substance: DEXAMETHASONE
     Route: 048
     Dates: start: 20191025
  62. PLAKON [Concomitant]
     Route: 042
     Dates: start: 20200210, end: 20200210
  63. NAXEN?F [Concomitant]
     Indication: BACK PAIN
     Route: 048
     Dates: start: 20200116
  64. MEDILAC DS [Concomitant]
     Route: 048
     Dates: start: 20200324
  65. CITOPCIN [Concomitant]
     Indication: COLITIS
     Route: 048
     Dates: start: 20200208, end: 20200208

REACTIONS (17)
  - Neutropenia [Recovered/Resolved]
  - Vomiting [Recovered/Resolved]
  - Diarrhoea [Recovered/Resolved]
  - Gastric ulcer haemorrhage [Recovered/Resolved]
  - Abdominal pain upper [Recovered/Resolved]
  - Arthralgia [Recovered/Resolved]
  - Abdominal distension [Recovered/Resolved]
  - Flank pain [Recovered/Resolved]
  - Nausea [Recovered/Resolved]
  - Pyrexia [Recovered/Resolved]
  - Nausea [Recovered/Resolved]
  - Colitis [Recovered/Resolved]
  - Pain in extremity [Recovering/Resolving]
  - Abdominal pain [Recovered/Resolved]
  - Feeling cold [Recovered/Resolved]
  - Rash [Recovering/Resolving]
  - Dyspnoea [Recovered/Resolved]

NARRATIVE: CASE EVENT DATE: 202001
